FAERS Safety Report 8574072 (Version 3)
Quarter: 2013Q1

REPORT INFORMATION
  Report Type: Spontaneous
  Country: US (occurrence: US)
  Receive Date: 20120522
  Receipt Date: 20130305
  Transmission Date: 20140127
  Serious: No
  Sender: FDA-Public Use
  Company Number: US-ENDO PHARMACEUTICALS INC.-SPLN20120046

PATIENT
  Age: 8 Year
  Sex: Female
  Weight: 44.2 kg

DRUGS (4)
  1. SUPPRELIN LA [Suspect]
     Indication: PRECOCIOUS PUBERTY
     Route: 058
     Dates: start: 2007
  2. DITROPAN [Concomitant]
     Indication: BLADDER SPASM
     Dosage: UNKNOWN
     Route: 065
  3. PREVACID [Concomitant]
     Indication: PRODUCT USED FOR UNKNOWN INDICATION
     Dosage: UNKNOWN
     Route: 065
  4. SINGULAIR [Concomitant]
     Indication: PRODUCT USED FOR UNKNOWN INDICATION
     Dosage: UNKNOWN
     Route: 065

REACTIONS (7)
  - Procedural complication [Recovered/Resolved]
  - Abdominal pain [Not Recovered/Not Resolved]
  - Vomiting [Not Recovered/Not Resolved]
  - Affect lability [Not Recovered/Not Resolved]
  - Mood swings [Not Recovered/Not Resolved]
  - Implant site bruising [Unknown]
  - Drug effect decreased [Not Recovered/Not Resolved]
